FAERS Safety Report 23067618 (Version 3)
Quarter: 2023Q4

REPORT INFORMATION
  Report Type: Report from Study
  Country: US (occurrence: US)
  Receive Date: 20231016
  Receipt Date: 20231023
  Transmission Date: 20240109
  Serious: Yes (Death, Other)
  Sender: FDA-Public Use
  Company Number: US-ABBVIE-5450120

PATIENT
  Sex: Male
  Weight: 61 kg

DRUGS (3)
  1. RINVOQ [Suspect]
     Active Substance: UPADACITINIB
     Indication: Colitis ulcerative
     Dosage: FORM STRENGTH: 30 MILLIGRAM
     Route: 048
     Dates: start: 20230713, end: 202309
  2. RINVOQ [Suspect]
     Active Substance: UPADACITINIB
     Indication: Colitis ulcerative
     Dosage: FORM STRENGTH: 30 MILLIGRAM?LAST ADMIN DATE: 2023
     Route: 048
     Dates: start: 20230608
  3. PREDNISONE [Concomitant]
     Active Substance: PREDNISONE
     Indication: Product used for unknown indication

REACTIONS (8)
  - Completed suicide [Fatal]
  - Low density lipoprotein increased [Unknown]
  - Insomnia [Unknown]
  - Hyperacusis [Unknown]
  - Blood bilirubin increased [Unknown]
  - COVID-19 [Unknown]
  - Blood cholesterol increased [Unknown]
  - Colitis ulcerative [Not Recovered/Not Resolved]

NARRATIVE: CASE EVENT DATE: 20230101
